FAERS Safety Report 7487095-6 (Version None)
Quarter: 2011Q2

REPORT INFORMATION
  Report Type: 
  Country: None (occurrence: None)
  Receive Date: 20110518
  Receipt Date: 20110510
  Transmission Date: 20111010
  Serious: Yes (Death)
  Sender: FDA-Public Use
  Company Number: PHHO2011DE07544

PATIENT
  Sex: Female
  Weight: 50.5 kg

DRUGS (7)
  1. GLEEVEC [Suspect]
     Indication: PULMONARY ARTERIAL HYPERTENSION
     Dosage: 200 MG, QD
     Route: 048
     Dates: start: 20110330, end: 20110411
  2. DIAZEPAM [Suspect]
  3. MARCUMAR [Concomitant]
  4. RAMIPRIL [Concomitant]
  5. REVATIO [Concomitant]
  6. GLEEVEC [Suspect]
     Dosage: 400 MG, QD
     Route: 048
     Dates: start: 20110412
  7. AMBRISENTAN [Concomitant]

REACTIONS (1)
  - TOXICITY TO VARIOUS AGENTS [None]
